FAERS Safety Report 21332911 (Version 1)
Quarter: 2022Q3

REPORT INFORMATION
  Report Type: Spontaneous
  Country: US (occurrence: None)
  Receive Date: 20220913
  Receipt Date: 20220913
  Transmission Date: 20221027
  Serious: No
  Sender: FDA-Public Use
  Company Number: None

PATIENT
  Age: 34 Year
  Sex: Female
  Weight: 78.75 kg

DRUGS (4)
  1. SCOPOLAMINE TRANDERMAL SYSTEM [Suspect]
     Active Substance: SCOPOLAMINE
     Indication: Motion sickness
     Dosage: OTHER FREQUENCY : 1 PATCH/3 DAYS;?
     Route: 062
     Dates: start: 20220626, end: 20220629
  2. FLONASE [Concomitant]
     Active Substance: FLUTICASONE PROPIONATE
  3. XYZAL [Concomitant]
     Active Substance: LEVOCETIRIZINE DIHYDROCHLORIDE
  4. VITAMINS [Concomitant]
     Active Substance: VITAMINS

REACTIONS (10)
  - Nausea [None]
  - Vomiting [None]
  - Amnesia [None]
  - Vision blurred [None]
  - Hallucination [None]
  - Heart rate increased [None]
  - Dizziness [None]
  - Dry mouth [None]
  - Photosensitivity reaction [None]
  - Tremor [None]

NARRATIVE: CASE EVENT DATE: 20220628
